FAERS Safety Report 4959752-4 (Version None)
Quarter: 2006Q1

REPORT INFORMATION
  Report Type: 
  Country: None (occurrence: None)
  Receive Date: 20060324
  Receipt Date: 20060313
  Transmission Date: 20060701
  Serious: Yes (Other)
  Sender: FDA-Public Use
  Company Number: 200602631

PATIENT
  Age: 62 Year
  Sex: Female

DRUGS (4)
  1. BOTOX [Suspect]
     Indication: DYSTONIA
     Dosage: 175 UNITS ONCE IM
     Route: 030
     Dates: start: 20060119
  2. BOTOX [Suspect]
     Indication: TORTICOLLIS
     Dosage: 175 UNITS ONCE IM
     Route: 030
     Dates: start: 20060119
  3. BOTOX [Suspect]
     Indication: DYSTONIA
     Dosage: 325 UNITS ONCE IM
     Route: 030
     Dates: start: 20060119
  4. BOTOX [Suspect]
     Indication: TORTICOLLIS
     Dosage: 325 UNITS ONCE IM
     Route: 030
     Dates: start: 20060119

REACTIONS (8)
  - CONDITION AGGRAVATED [None]
  - CORONARY ARTERY OCCLUSION [None]
  - INFLUENZA LIKE ILLNESS [None]
  - MYALGIA [None]
  - NECK PAIN [None]
  - PLATELET COUNT INCREASED [None]
  - SHOULDER PAIN [None]
  - THYROIDITIS ACUTE [None]
